FAERS Safety Report 9424618 (Version 1)
Quarter: 2013Q3

REPORT INFORMATION
  Report Type: Spontaneous
  Country: US (occurrence: None)
  Receive Date: 20130726
  Receipt Date: 20130726
  Transmission Date: 20140515
  Serious: Yes (Other)
  Sender: FDA-Public Use
  Company Number: None

PATIENT
  Age: 61 Year
  Sex: Female
  Weight: 56.7 kg

DRUGS (1)
  1. CIPROFLOXACIN [Suspect]
     Indication: URINARY TRACT INFECTION
     Dosage: DOSE 1 12 HRS PO
     Route: 048
     Dates: start: 20130616, end: 20130619

REACTIONS (9)
  - Insomnia [None]
  - Retinal tear [None]
  - Dry throat [None]
  - Starvation [None]
  - Psychotic disorder [None]
  - Dry mouth [None]
  - Gastrointestinal pain [None]
  - Dyspepsia [None]
  - Nervous system disorder [None]
